FAERS Safety Report 7746896-7 (Version None)
Quarter: 2011Q3

REPORT INFORMATION
  Report Type: 
  Country: None (occurrence: None)
  Receive Date: 20110913
  Receipt Date: 20110901
  Transmission Date: 20111222
  Serious: Yes (Death)
  Sender: FDA-Public Use
  Company Number: US-CELGENEUS-163-20785-11070742

PATIENT
  Sex: Female

DRUGS (1)
  1. THALOMID [Suspect]
     Indication: MEDULLOBLASTOMA RECURRENT
     Dosage: 50 MILLIGRAM
     Route: 048
     Dates: start: 20100429, end: 20101014

REACTIONS (1)
  - MEDULLOBLASTOMA [None]
